FAERS Safety Report 4742536-X (Version None)
Quarter: 2005Q3

REPORT INFORMATION
  Report Type: 
  Country: None (occurrence: None)
  Receive Date: 20050811
  Receipt Date: 20050722
  Transmission Date: 20060218
  Serious: Yes (Hospitalization, Disabling)
  Sender: FDA-Public Use
  Company Number: DE-BRISTOL-MYERS SQUIBB COMPANY-13048020

PATIENT
  Age: 53 Year
  Sex: Male

DRUGS (3)
  1. CISPLATIN [Suspect]
     Indication: SMALL CELL LUNG CANCER STAGE UNSPECIFIED
     Route: 042
     Dates: start: 20040409, end: 20040409
  2. TOPOTECAN [Suspect]
     Indication: SMALL CELL LUNG CANCER STAGE UNSPECIFIED
     Route: 042
     Dates: start: 20040405, end: 20040409
  3. NEXIUM [Concomitant]

REACTIONS (2)
  - MUCOSAL INFLAMMATION [None]
  - NEUTROPENIA [None]
